FAERS Safety Report 22124937 (Version 1)
Quarter: 2023Q1

REPORT INFORMATION
  Report Type: Spontaneous
  Country: US (occurrence: US)
  Receive Date: 20230322
  Receipt Date: 20230322
  Transmission Date: 20230417
  Serious: No
  Sender: FDA-Public Use
  Company Number: US-TAKEDA-2023TUS026821

PATIENT
  Sex: Female
  Weight: 77.1 kg

DRUGS (5)
  1. TRINTELLIX [Interacting]
     Active Substance: VORTIOXETINE HYDROBROMIDE
     Indication: Depression
     Dosage: UNK UNK, QD
     Route: 065
  2. HETLIOZ [Interacting]
     Active Substance: TASIMELTEON
     Indication: Non-24-hour sleep-wake disorder
     Dosage: 20 MILLIGRAM, QD
     Route: 048
  3. NORVASC [Concomitant]
     Active Substance: AMLODIPINE BESYLATE
     Dosage: 10 MILLIGRAM, QD
  4. EZETIMIBE\ROSUVASTATIN [Concomitant]
     Active Substance: EZETIMIBE\ROSUVASTATIN
     Dosage: UNK UNK, QD
  5. Amlodipine + atorvastatin [Concomitant]
     Dosage: UNK UNK, QD

REACTIONS (2)
  - Infrequent bowel movements [Unknown]
  - Drug interaction [Unknown]
